FAERS Safety Report 22309786 (Version 1)
Quarter: 2023Q2

REPORT INFORMATION
  Report Type: Spontaneous
  Country: DE (occurrence: DE)
  Receive Date: 20230511
  Receipt Date: 20230511
  Transmission Date: 20230721
  Serious: Yes (Death, Other)
  Sender: FDA-Public Use
  Company Number: DE-JNJFOC-20230518990

PATIENT
  Age: 65 Year
  Sex: Female

DRUGS (2)
  1. STELARA [Suspect]
     Active Substance: USTEKINUMAB
     Indication: Crohn^s disease
     Route: 040
  2. STELARA [Suspect]
     Active Substance: USTEKINUMAB
     Route: 040

REACTIONS (3)
  - Death [Fatal]
  - Crohn^s disease [Unknown]
  - Treatment noncompliance [Unknown]
